FAERS Safety Report 9799923 (Version 1)
Quarter: 2014Q1

REPORT INFORMATION
  Report Type: Spontaneous
  Country: US (occurrence: US)
  Receive Date: 20140106
  Receipt Date: 20140106
  Transmission Date: 20141002
  Serious: No
  Sender: FDA-Public Use
  Company Number: US-009507513-1312USA008354

PATIENT
  Sex: Female

DRUGS (1)
  1. AFRIN PUMP SPRAY [Suspect]
     Indication: PRODUCT USED FOR UNKNOWN INDICATION
     Dosage: UNK, UNKNOWN
     Route: 045

REACTIONS (3)
  - Dependence [Unknown]
  - Product packaging issue [Unknown]
  - Product lot number issue [Unknown]
